FAERS Safety Report 4946535-4 (Version None)
Quarter: 2006Q1

REPORT INFORMATION
  Report Type: 
  Country: None (occurrence: None)
  Receive Date: 20060313
  Receipt Date: 20060228
  Transmission Date: 20060701
  Serious: Yes (Other)
  Sender: FDA-Public Use
  Company Number: 2005098264

PATIENT
  Age: 46 Year
  Sex: Male

DRUGS (11)
  1. CELEBREX [Suspect]
     Indication: ILL-DEFINED DISORDER
     Dosage: ORAL
     Route: 048
     Dates: start: 20030101
  2. VIOXX [Suspect]
     Indication: BACK PAIN
     Dosage: ORAL
     Route: 048
     Dates: start: 19990101
  3. VIOXX [Suspect]
     Indication: SCIATICA
     Dosage: ORAL
     Route: 048
     Dates: start: 19990101
  4. LIPITOR [Concomitant]
  5. NORVASC [Concomitant]
  6. TRAMADOL HCL [Concomitant]
  7. OTHER ANALGESICS AND ANTIPYRETICS [Concomitant]
  8. ADVIL [Concomitant]
  9. ULTRAM [Concomitant]
  10. PREVACID [Concomitant]
  11. ZESTORETIC [Concomitant]

REACTIONS (13)
  - ABDOMINAL PAIN UPPER [None]
  - CARDIAC DISORDER [None]
  - CHEST PAIN [None]
  - DYSPNOEA [None]
  - EMOTIONAL DISTRESS [None]
  - ERUCTATION [None]
  - FLATULENCE [None]
  - GASTROINTESTINAL DISORDER [None]
  - OESOPHAGEAL DISORDER [None]
  - PAIN [None]
  - POLYTRAUMATISM [None]
  - STENT PLACEMENT [None]
  - THERAPY NON-RESPONDER [None]
